FAERS Safety Report 5956702-9 (Version None)
Quarter: 2008Q4

REPORT INFORMATION
  Report Type: 
  Country: None (occurrence: None)
  Receive Date: 20081118
  Receipt Date: 20081106
  Transmission Date: 20090506
  Serious: Yes (Other)
  Sender: FDA-Public Use
  Company Number: CH-ASTRAZENECA-2008PK02445

PATIENT
  Age: 56 Year
  Sex: Female
  Weight: 75 kg

DRUGS (4)
  1. SYMBICORT [Suspect]
     Indication: ASTHMA
     Dosage: 1 INHALATION TWO TIMES DAILY
     Route: 055
     Dates: start: 20051221, end: 20080701
  2. ATACAND [Concomitant]
     Route: 048
  3. CITALOPRAM HYDROBROMIDE [Concomitant]
  4. PANTOZOL [Concomitant]

REACTIONS (1)
  - DERMATITIS [None]
